FAERS Safety Report 5199309-6 (Version None)
Quarter: 2006Q4

REPORT INFORMATION
  Report Type: 
  Country: None (occurrence: None)
  Receive Date: 20061016
  Receipt Date: 20060620
  Transmission Date: 20070319
  Serious: No
  Sender: FDA-Public Use
  Company Number: 2006SP002480

PATIENT
  Age: 84 Year
  Sex: Male
  Weight: 82.5547 kg

DRUGS (3)
  1. LUNESTA [Suspect]
     Indication: INSOMNIA
     Dosage: SEE IMAGE
     Route: 047
     Dates: start: 20050501, end: 20051201
  2. LUNESTA [Suspect]
     Indication: INSOMNIA
     Dosage: SEE IMAGE
     Route: 047
     Dates: start: 20051201
  3. PRINIVIL [Concomitant]

REACTIONS (4)
  - DRUG INEFFECTIVE [None]
  - INITIAL INSOMNIA [None]
  - NAUSEA [None]
  - PRURITUS [None]
